FAERS Safety Report 12520329 (Version 1)
Quarter: 2016Q2

REPORT INFORMATION
  Report Type: Spontaneous
  Country: US (occurrence: None)
  Receive Date: 20160630
  Receipt Date: 20160630
  Transmission Date: 20160815
  Serious: Yes (Death)
  Sender: FDA-Public Use
  Company Number: None

PATIENT
  Age: 64 Year
  Sex: Male

DRUGS (4)
  1. RESTORIL [Concomitant]
     Active Substance: TEMAZEPAM
  2. XANAX [Concomitant]
     Active Substance: ALPRAZOLAM
  3. MOBIC [Concomitant]
     Active Substance: MELOXICAM
  4. TARCEVA [Suspect]
     Active Substance: ERLOTINIB HYDROCHLORIDE
     Indication: NEOPLASM MALIGNANT
     Dosage: 1 TAB DAILY PO
     Route: 048
     Dates: end: 20160624

REACTIONS (1)
  - Pneumonia [None]

NARRATIVE: CASE EVENT DATE: 20160624
